FAERS Safety Report 9035733 (Version 1)
Quarter: 2013Q1

REPORT INFORMATION
  Report Type: Report from Study
  Country: US (occurrence: US)
  Receive Date: 20130129
  Receipt Date: 20130129
  Transmission Date: 20140127
  Serious: No
  Sender: FDA-Public Use
  Company Number: US-ABBOTT-12P-163-0921103-00

PATIENT
  Age: 9 Year
  Sex: Female

DRUGS (5)
  1. HUMIRA 40 MG/0.8 ML PEN [Suspect]
     Indication: CROHN^S DISEASE
     Dates: start: 20120306
  2. 6 MP [Concomitant]
     Indication: CROHN^S DISEASE
     Dosage: 1/2 TAB DAILY
  3. ENALAPRIL [Concomitant]
     Indication: CARDIAC DISORDER
  4. MIRALAX [Concomitant]
     Indication: CROHN^S DISEASE
     Dosage: DAILY
  5. TRAMADOL [Concomitant]
     Indication: PAIN

REACTIONS (5)
  - Rhinorrhoea [Not Recovered/Not Resolved]
  - Sinus congestion [Not Recovered/Not Resolved]
  - Condition aggravated [Not Recovered/Not Resolved]
  - Cough [Not Recovered/Not Resolved]
  - Vomiting [Not Recovered/Not Resolved]
